FAERS Safety Report 4968967-0 (Version None)
Quarter: 2006Q2

REPORT INFORMATION
  Report Type: 
  Country: None (occurrence: None)
  Receive Date: 20060411
  Receipt Date: 20051025
  Transmission Date: 20061013
  Serious: Yes (Hospitalization)
  Sender: FDA-Public Use
  Company Number: US-MERCK-0510USA09224

PATIENT
  Age: 72 Year
  Sex: Female
  Weight: 68 kg

DRUGS (9)
  1. VIOXX [Suspect]
     Indication: ARTHRITIS
     Route: 048
     Dates: end: 20020401
  2. VIOXX [Suspect]
     Route: 048
     Dates: start: 20000501, end: 20040701
  3. VIOXX [Suspect]
     Route: 048
     Dates: start: 20020401
  4. NEXIUM [Concomitant]
     Route: 065
  5. TEMAZEPAM [Concomitant]
     Route: 065
  6. PREMARIN [Concomitant]
     Route: 065
  7. ECOTRIN [Concomitant]
     Route: 065
  8. INDERAL [Concomitant]
     Route: 065
     Dates: end: 20021111
  9. METOCLOPRAMIDE [Concomitant]
     Route: 065

REACTIONS (6)
  - ANGINA UNSTABLE [None]
  - CHEST PAIN [None]
  - DEPRESSION [None]
  - HYPERTENSION [None]
  - INFECTED BUNION [None]
  - MYOCARDIAL INFARCTION [None]
